FAERS Safety Report 12240976 (Version 2)
Quarter: 2016Q2

REPORT INFORMATION
  Report Type: Spontaneous
  Country: IT (occurrence: IT)
  Receive Date: 20160406
  Receipt Date: 20160418
  Transmission Date: 20160815
  Serious: Yes (Other)
  Sender: FDA-Public Use
  Company Number: IT-ROCHE-1736768

PATIENT
  Age: 42 Year
  Sex: Female
  Weight: 106 kg

DRUGS (10)
  1. DOCETAXEL. [Concomitant]
     Active Substance: DOCETAXEL
     Dosage: RESTARTED
     Route: 065
     Dates: start: 20160401
  2. PERJETA [Suspect]
     Active Substance: PERTUZUMAB
     Dosage: RESTARTED
     Route: 042
     Dates: start: 20160401
  3. HERCEPTIN [Suspect]
     Active Substance: TRASTUZUMAB
     Dosage: RESTARTED
     Route: 042
     Dates: start: 20160401
  4. TRIMETON (ITALY) [Concomitant]
     Indication: HYPERSENSITIVITY
     Route: 042
     Dates: start: 20150915, end: 20151218
  5. PERJETA [Suspect]
     Active Substance: PERTUZUMAB
     Indication: BREAST CANCER
     Dosage: SOLUTION FOR INJECTION
     Route: 042
     Dates: start: 20150915, end: 20151218
  6. URBASON [Concomitant]
     Active Substance: METHYLPREDNISOLONE
     Indication: INFLAMMATION
     Route: 042
     Dates: start: 20150915, end: 20151218
  7. HERCEPTIN [Suspect]
     Active Substance: TRASTUZUMAB
     Indication: BREAST CANCER
     Route: 042
     Dates: start: 20150915, end: 20151218
  8. GRANISETRON [Concomitant]
     Active Substance: GRANISETRON
     Indication: PROPHYLAXIS OF NAUSEA AND VOMITING
     Route: 042
     Dates: start: 20150915, end: 20151218
  9. DOCETAXEL. [Concomitant]
     Active Substance: DOCETAXEL
     Indication: BREAST CANCER
     Route: 042
     Dates: start: 20150915, end: 20151218
  10. ZANTAC [Concomitant]
     Active Substance: RANITIDINE HYDROCHLORIDE
     Indication: PROPHYLAXIS OF NAUSEA AND VOMITING
     Route: 042
     Dates: start: 20150915, end: 20151218

REACTIONS (1)
  - Myocarditis [Recovered/Resolved]

NARRATIVE: CASE EVENT DATE: 20151218
